FAERS Safety Report 7001101-4 (Version None)
Quarter: 2010Q3

REPORT INFORMATION
  Report Type: 
  Country: None (occurrence: None)
  Receive Date: 20100920
  Receipt Date: 20100910
  Transmission Date: 20110219
  Serious: Yes (Other)
  Sender: FDA-Public Use
  Company Number: JP-ROCHE-713633

PATIENT
  Sex: Male
  Weight: 70 kg

DRUGS (9)
  1. CELLCEPT [Suspect]
     Indication: RENAL TRANSPLANT
     Dosage: DOSE INCREASED.
     Route: 048
     Dates: start: 20041101, end: 20090101
  2. CELLCEPT [Suspect]
     Route: 048
     Dates: start: 20090101, end: 20091126
  3. PROGRAF [Suspect]
     Indication: RENAL TRANSPLANT
     Route: 048
     Dates: start: 20041101, end: 20090101
  4. PROGRAF [Suspect]
     Dosage: DOSE DECREASED
     Route: 048
     Dates: start: 20090101, end: 20091127
  5. MEDROL [Concomitant]
     Route: 048
     Dates: start: 20041101
  6. HERBESSER [Concomitant]
     Route: 048
     Dates: start: 20041101, end: 20091127
  7. AMLODIPINE BESYLATE [Concomitant]
     Route: 048
     Dates: start: 20030101
  8. NU-LOTAN [Concomitant]
     Route: 048
     Dates: start: 20040101
  9. PERSANTIN [Concomitant]
     Route: 048
     Dates: start: 20040101, end: 20091127

REACTIONS (3)
  - EPSTEIN-BARR VIRUS ASSOCIATED LYMPHOPROLIFERATIVE DISORDER [None]
  - FOCAL SEGMENTAL GLOMERULOSCLEROSIS [None]
  - RENAL DISORDER [None]
